FAERS Safety Report 4512299-1 (Version None)
Quarter: 2004Q4

REPORT INFORMATION
  Report Type: 
  Country: None (occurrence: None)
  Receive Date: 20041123
  Receipt Date: 20041112
  Transmission Date: 20050328
  Serious: Yes (Hospitalization)
  Sender: FDA-Public Use
  Company Number: 2004-02-0388

PATIENT
  Age: 79 Year
  Sex: Female

DRUGS (5)
  1. CLARITIN [Suspect]
     Indication: URTICARIA
     Dosage: 10 MG QD, ORAL
     Route: 048
     Dates: start: 20020130
  2. ATARAX [Suspect]
     Indication: URTICARIA
     Dosage: 1 TAB QD, ORAL
     Route: 048
     Dates: start: 20020130
  3. CYNOMEL [Suspect]
     Indication: HYPOTHYROIDISM
     Dosage: 0.75 TAB QD
  4. SINTROM [Suspect]
     Indication: ATRIAL FIBRILLATION
     Dosage: 1 TAB QD
     Dates: start: 20020130
  5. ALDACTONE [Suspect]
     Indication: ESSENTIAL HYPERTENSION
     Dosage: 75 MG QD ORAL
     Route: 048
     Dates: start: 20020130, end: 20020606

REACTIONS (5)
  - DERMATITIS CONTACT [None]
  - DERMATITIS EXFOLIATIVE [None]
  - ECZEMA [None]
  - PRURIGO [None]
  - TOXIC SKIN ERUPTION [None]
